FAERS Safety Report 15564778 (Version 1)
Quarter: 2018Q4

REPORT INFORMATION
  Report Type: Spontaneous
  Country: US (occurrence: US)
  Receive Date: 20181029
  Receipt Date: 20181029
  Transmission Date: 20190205
  Serious: Yes (Other)
  Sender: FDA-Public Use
  Company Number: None

PATIENT
  Age: 64 Year
  Sex: Female
  Weight: 71.1 kg

DRUGS (3)
  1. MULTIVITAMIN [Concomitant]
     Active Substance: VITAMINS
  2. OTEZLA [Suspect]
     Active Substance: APREMILAST
     Indication: PSORIASIS
     Dates: start: 20171001, end: 20180401
  3. MUSCINEX [Concomitant]

REACTIONS (4)
  - Therapy cessation [None]
  - Pain [None]
  - Joint range of motion decreased [None]
  - Muscular weakness [None]

NARRATIVE: CASE EVENT DATE: 20171130
